FAERS Safety Report 8089134-0 (Version None)
Quarter: 2012Q1

REPORT INFORMATION
  Report Type: 
  Country: None (occurrence: None)
  Receive Date: 20120128
  Receipt Date: 20110621
  Transmission Date: 20120608
  Serious: No
  Sender: FDA-Public Use
  Company Number: US-ABBOTT-11P-163-0834598-00

PATIENT
  Age: 10 Year
  Sex: Male

DRUGS (8)
  1. ACETAMINOPHEN [Concomitant]
     Indication: PAIN
  2. CELEBREX [Concomitant]
     Indication: JUVENILE ARTHRITIS
     Dosage: DAILY
  3. INCREDIBLE LIFE (LIQUID MULTIVITAMIN) [Concomitant]
     Indication: VITAMIN SUPPLEMENTATION
     Dosage: DAILY
  4. OMEGA FISH OIL [Concomitant]
     Indication: SUPPLEMENTATION THERAPY
     Dosage: TID
  5. PREVACID [Concomitant]
     Indication: GASTRIC DISORDER
     Dosage: DAILY
  6. PREVACID [Concomitant]
     Indication: PROPHYLAXIS AGAINST GASTROINTESTINAL ULCER
  7. HUMIRA [Suspect]
     Indication: JUVENILE ARTHRITIS
     Dates: start: 20110414, end: 20110601
  8. PREDNISONE TAB [Concomitant]
     Indication: JUVENILE ARTHRITIS
     Dosage: DAILY

REACTIONS (2)
  - JOINT STIFFNESS [None]
  - ARTHRALGIA [None]
